FAERS Safety Report 9498301 (Version 1)
Quarter: 2013Q3

REPORT INFORMATION
  Report Type: Spontaneous
  Country: US (occurrence: None)
  Receive Date: 20130903
  Receipt Date: 20130903
  Transmission Date: 20140515
  Serious: Yes (Life-Threatening)
  Sender: FDA-Public Use
  Company Number: None

PATIENT
  Age: 54 Year
  Sex: Male
  Weight: 81.65 kg

DRUGS (13)
  1. CARFILZOMIB [Suspect]
     Indication: AMYLOIDOSIS
     Dosage: 27 MG/M2 PER PROTOCOL INTRAVENOUS
     Route: 042
     Dates: start: 20130715, end: 20130823
  2. DEXAMETHASONE [Concomitant]
  3. POMALIDOMIDE [Concomitant]
  4. ANDROGEL [Concomitant]
  5. TEMAZEPAM [Concomitant]
  6. ISENTRESSE [Concomitant]
  7. MICARDIS [Concomitant]
  8. TRUVADA [Concomitant]
  9. PRILOSEC [Concomitant]
  10. LOW-DOSE ASPIRIN [Concomitant]
  11. VIRAMYST [Concomitant]
  12. LORATIDINE [Concomitant]
  13. RIVAROXABAN [Concomitant]

REACTIONS (4)
  - Chest pain [None]
  - Cardiogenic shock [None]
  - Cardiomyopathy [None]
  - Cardiac enzymes increased [None]
